FAERS Safety Report 24842298 (Version 1)
Quarter: 2025Q1

REPORT INFORMATION
  Report Type: Spontaneous
  Country: US (occurrence: US)
  Receive Date: 20250115
  Receipt Date: 20250115
  Transmission Date: 20250409
  Serious: No
  Sender: SANOFI AVENTIS
  Company Number: US-SA-2025SA011359

PATIENT
  Age: 59 Year
  Sex: Male
  Weight: 94 kg

DRUGS (1)
  1. KEVZARA [Suspect]
     Active Substance: SARILUMAB
     Dosage: 200 MG, QOW
     Route: 058
     Dates: start: 20250105

REACTIONS (2)
  - Dysgeusia [Recovered/Resolved]
  - Nasal disorder [Recovered/Resolved]

NARRATIVE: CASE EVENT DATE: 20250107
